FAERS Safety Report 18558779 (Version 1)
Quarter: 2020Q4

REPORT INFORMATION
  Report Type: Spontaneous
  Country: ES (occurrence: ES)
  Receive Date: 20201130
  Receipt Date: 20201130
  Transmission Date: 20210114
  Serious: Yes (Other)
  Sender: FDA-Public Use
  Company Number: ES-PFIZER INC-2020464103

PATIENT
  Age: 37 Year
  Sex: Male

DRUGS (3)
  1. THIOPENTAL [Suspect]
     Active Substance: THIOPENTAL
     Dosage: UNK
  2. THIAMINE. [Concomitant]
     Active Substance: THIAMINE
     Indication: WERNICKE^S ENCEPHALOPATHY
     Dosage: UNK (HIGH-DOSE)
  3. KETAMINE HCL [Suspect]
     Active Substance: KETAMINE HYDROCHLORIDE
     Dosage: UNK

REACTIONS (1)
  - Coma [Unknown]
